FAERS Safety Report 10112263 (Version 3)
Quarter: 2014Q2

REPORT INFORMATION
  Report Type: Report from Study
  Country: US (occurrence: US)
  Receive Date: 20140425
  Receipt Date: 20140502
  Transmission Date: 20141212
  Serious: Yes (Hospitalization, Other)
  Sender: FDA-Public Use
  Company Number: US-ABBVIE-12P-163-0974072-00

PATIENT
  Age: 43 Year
  Sex: Male
  Weight: 59.02 kg

DRUGS (7)
  1. HUMIRA [Suspect]
     Indication: CROHN^S DISEASE
     Route: 058
     Dates: start: 2008
  2. HUMIRA [Suspect]
     Indication: INTESTINAL FISTULA
     Route: 058
  3. HUMIRA [Suspect]
     Route: 058
  4. HUMIRA [Suspect]
     Route: 058
     Dates: start: 201404
  5. LOSARTAN [Concomitant]
     Indication: HYPERTENSION
  6. VALIUM [Concomitant]
     Indication: ANXIETY
     Dosage: OCCASIONALLY
  7. SONATA [Concomitant]
     Indication: INSOMNIA

REACTIONS (13)
  - Small intestinal obstruction [Recovered/Resolved]
  - Crohn^s disease [Unknown]
  - Nausea [Unknown]
  - Vomiting [Unknown]
  - Gastrointestinal oedema [Unknown]
  - Intestinal stenosis [Recovered/Resolved]
  - Abdominal adhesions [Recovered/Resolved]
  - Intestinal obstruction [Recovered/Resolved]
  - Fistula [Recovered/Resolved]
  - Blood triglycerides increased [Unknown]
  - Attention deficit/hyperactivity disorder [Unknown]
  - Procedural pain [Recovered/Resolved]
  - Stress [Unknown]
